FAERS Safety Report 16070018 (Version 3)
Quarter: 2019Q2

REPORT INFORMATION
  Report Type: Report from Study
  Country: CZ (occurrence: CZ)
  Receive Date: 20190314
  Receipt Date: 20190408
  Transmission Date: 20190711
  Serious: Yes (Other)
  Sender: FDA-Public Use
  Company Number: CZ-ROCHE-2279236

PATIENT
  Age: 59 Year
  Sex: Female
  Weight: 67.1 kg

DRUGS (12)
  1. MAGNOSOLV [Concomitant]
     Indication: HYPOMAGNESAEMIA
     Route: 065
     Dates: start: 20181010
  2. MAGNOSOLV [Concomitant]
     Route: 065
     Dates: start: 20181122
  3. PRAGIOLA [Concomitant]
     Indication: NEUROPATHY PERIPHERAL
     Route: 065
     Dates: start: 20190125
  4. WARFARIN [Concomitant]
     Active Substance: WARFARIN
     Indication: DEEP VEIN THROMBOSIS
     Route: 065
     Dates: start: 20181115
  5. PACLITAXEL. [Suspect]
     Active Substance: PACLITAXEL
     Indication: OVARIAN CANCER
     Dosage: 08/AUG/2018, LAST PACLITAXEL ADMINISTERED PRIOR TO SAE ONSET 287 MG
     Route: 042
     Dates: start: 20180411
  6. ELICEA [Concomitant]
     Active Substance: ESCITALOPRAM OXALATE
     Indication: ANXIETY
     Route: 065
     Dates: start: 20190125, end: 20190324
  7. ATEZOLIZUMAB. [Suspect]
     Active Substance: ATEZOLIZUMAB
     Indication: OVARIAN CANCER
     Dosage: 02/JAN/2019, MOST RECENT DOSE OF ATEZOLIZUMAB PRIOR TO SAE ONSET?DATE OF MOST RECENT DOSE PRIOR TO S
     Route: 042
     Dates: start: 20180411
  8. CARBOPLATIN. [Suspect]
     Active Substance: CARBOPLATIN
     Indication: OVARIAN CANCER
     Dosage: DOSE TO ACHIEVE A TARGET AREA UNDER THE CURVE (AUC) OF 6 MILLIGRAMS PER MILLILITER/MINUTE (MG/ML/MIN
     Route: 042
     Dates: start: 20180411
  9. STILNOX [Concomitant]
     Active Substance: ZOLPIDEM TARTRATE
     Indication: INSOMNIA
     Route: 065
     Dates: start: 20181031, end: 201812
  10. BEVACIZUMAB. [Suspect]
     Active Substance: BEVACIZUMAB
     Indication: OVARIAN CANCER
     Dosage: 02/JAN/2019, MOST RECENT DOSE OF BEVACIZUMAB PRIOR TO AE ONSET 952.5 MG
     Route: 042
     Dates: start: 20180411
  11. TRAMAL [Concomitant]
     Active Substance: TRAMADOL
     Indication: PAIN
     Route: 065
     Dates: start: 20180413, end: 201812
  12. NEURITOGEN [Concomitant]
     Indication: NEUROPATHY PERIPHERAL
     Route: 065
     Dates: start: 20181128, end: 201901

REACTIONS (1)
  - Iridocyclitis [Recovered/Resolved]

NARRATIVE: CASE EVENT DATE: 20190109
